FAERS Safety Report 8540803-5 (Version None)
Quarter: 2012Q3

REPORT INFORMATION
  Report Type: 
  Country: None (occurrence: None)
  Receive Date: 20120726
  Receipt Date: 20120718
  Transmission Date: 20120928
  Serious: Yes (Hospitalization)
  Sender: FDA-Public Use
  Company Number: BR-ASTRAZENECA-2012SE51360

PATIENT
  Age: 79 Year
  Sex: Female
  Weight: 66 kg

DRUGS (4)
  1. METOPROLOL SUCCINATE [Suspect]
     Indication: DRESSLER'S SYNDROME
     Route: 048
     Dates: start: 20070101
  2. CORUS [Concomitant]
     Indication: MYOCARDIAL INFARCTION
     Route: 048
  3. CRESTOR [Suspect]
     Indication: BLOOD CHOLESTEROL INCREASED
     Route: 048
     Dates: start: 20100101
  4. ASPIRIN [Concomitant]
     Indication: MYOCARDIAL INFARCTION
     Route: 048

REACTIONS (2)
  - ARTERIOSCLEROSIS CORONARY ARTERY [None]
  - MYOCARDIAL INFARCTION [None]
